FAERS Safety Report 4727519-8 (Version None)
Quarter: 2005Q3

REPORT INFORMATION
  Report Type: 
  Country: None (occurrence: None)
  Receive Date: 20050727
  Receipt Date: 20050727
  Transmission Date: 20060218
  Serious: Yes (Hospitalization)
  Sender: FDA-Public Use
  Company Number: None

PATIENT
  Age: 72 Year
  Sex: Female
  Weight: 84.8226 kg

DRUGS (5)
  1. NIASPAN [Suspect]
     Indication: BLOOD CHOLESTEROL INCREASED
     Dosage: 1 TABLET ORALLY AT BEDTIME
     Route: 048
  2. FOSAMAX [Concomitant]
  3. FLONASE [Concomitant]
  4. SYNTHROID [Concomitant]
  5. ZETIA [Concomitant]

REACTIONS (5)
  - ERYTHEMA [None]
  - HEART RATE INCREASED [None]
  - HYPOAESTHESIA [None]
  - HYPOVENTILATION [None]
  - SWELLING FACE [None]
